FAERS Safety Report 5064461-X (Version None)
Quarter: 2006Q3

REPORT INFORMATION
  Report Type: 
  Country: None (occurrence: None)
  Receive Date: 20060728
  Receipt Date: 20060724
  Transmission Date: 20061208
  Serious: Yes (Hospitalization)
  Sender: FDA-Public Use
  Company Number: 2006CG01272

PATIENT
  Age: 86 Year
  Sex: Female

DRUGS (11)
  1. HYTACAND [Suspect]
     Indication: ESSENTIAL HYPERTENSION
     Dosage: 16 + 12.5 MG ONCE DAILY
     Route: 048
     Dates: end: 20060630
  2. LYRICA [Suspect]
     Indication: MUSCULOSKELETAL PAIN
     Route: 048
     Dates: start: 20060627, end: 20060627
  3. PREVISCAN [Suspect]
     Indication: ATRIAL FIBRILLATION
     Route: 048
     Dates: end: 20060630
  4. PREVISCAN [Suspect]
     Indication: ATRIAL FLUTTER
     Route: 048
     Dates: end: 20060630
  5. PHYSIOTENS [Suspect]
     Indication: ESSENTIAL HYPERTENSION
     Route: 048
     Dates: end: 20060630
  6. AMLODIPINE BESYLATE [Suspect]
     Indication: ESSENTIAL HYPERTENSION
     Route: 048
     Dates: end: 20060630
  7. CORTANCYL [Suspect]
     Route: 048
     Dates: start: 20060526, end: 20060627
  8. TEMESTA [Concomitant]
  9. NOCTAMIDE [Concomitant]
  10. FOSAMAX [Concomitant]
  11. PANTOPRAZOLE SODIUM [Concomitant]

REACTIONS (5)
  - BLOOD PRESSURE DECREASED [None]
  - BLOOD PRESSURE INCREASED [None]
  - HEART RATE IRREGULAR [None]
  - LOSS OF CONSCIOUSNESS [None]
  - MALAISE [None]
